FAERS Safety Report 9577419 (Version 1)
Quarter: 2013Q4

REPORT INFORMATION
  Report Type: Spontaneous
  Country: US (occurrence: US)
  Receive Date: 20131001
  Receipt Date: 20131001
  Transmission Date: 20140711
  Serious: No
  Sender: FDA-Public Use
  Company Number: US-AMGEN-USASP2013008066

PATIENT
  Sex: Male
  Weight: 108.8 kg

DRUGS (7)
  1. ENBREL [Suspect]
     Indication: PSORIASIS
     Dosage: UNK
  2. MULTIVITAMINS, PLAIN [Concomitant]
     Dosage: UNK
  3. FENOFIBRATE [Concomitant]
     Dosage: UNK
  4. LEXAPRO [Concomitant]
     Dosage: UNK
  5. VYTORIN [Concomitant]
     Dosage: UNK
  6. DIOVAN HCT [Concomitant]
     Dosage: UNK
  7. OMEGA 3                            /01334101/ [Concomitant]
     Dosage: UNK

REACTIONS (3)
  - Limb discomfort [Unknown]
  - Drug effect incomplete [Unknown]
  - Psoriasis [Unknown]
